FAERS Safety Report 9718477 (Version 1)
Quarter: 2013Q4

REPORT INFORMATION
  Report Type: Not Available
  Country: US (occurrence: US)
  Receive Date: 20131125
  Receipt Date: 20131125
  Transmission Date: 20140711
  Serious: No
  Sender: FDA-Public Use
  Company Number: US-VIVUS-2013V1000556

PATIENT
  Sex: Female
  Weight: 81.72 kg

DRUGS (3)
  1. QSYMIA 3.75MG/23MG [Suspect]
     Indication: WEIGHT DECREASED
     Dosage: STARTED APPROXIMATELY 3 TO 4 MONTHS AGO
     Route: 048
     Dates: start: 2013, end: 2013
  2. QSYMIA 7.5MG/46MG [Suspect]
     Indication: WEIGHT DECREASED
     Dosage: STARTED APPROXIMATELY 3 TO 4 MONTHS AGO
     Route: 048
     Dates: start: 2013
  3. PRILOSEC [Concomitant]
     Indication: PRODUCT USED FOR UNKNOWN INDICATION
     Dosage: STARTED YEARS AGO
     Route: 048

REACTIONS (4)
  - Cataract operation [Not Recovered/Not Resolved]
  - Lower limb fracture [Unknown]
  - Dry eye [Not Recovered/Not Resolved]
  - Eye pain [Not Recovered/Not Resolved]
